FAERS Safety Report 15182737 (Version 2)
Quarter: 2018Q3

REPORT INFORMATION
  Report Type: Spontaneous
  Country: US (occurrence: US)
  Receive Date: 20180723
  Receipt Date: 20180803
  Transmission Date: 20181010
  Serious: Yes (Hospitalization)
  Sender: FDA-Public Use
  Company Number: US-TEVA-2018-US-930479

PATIENT
  Age: 48 Year
  Sex: Male

DRUGS (2)
  1. AMPHETAMINE/DEXTROAMPHETAMINE [Interacting]
     Active Substance: AMPHETAMINE\DEXTROAMPHETAMINE
     Indication: PERFORMANCE ENHANCING PRODUCT USE
     Dosage: 7 MONTHS EACH YEAR FROM 4 YEARS IN A CYCLIC PATTERN
     Route: 065
  2. TESTOSTERONE. [Suspect]
     Active Substance: TESTOSTERONE
     Indication: PERFORMANCE ENHANCING PRODUCT USE
     Dosage: 7 MONTHS EACH YEAR FROM 4 YEARS IN A CYCLIC PATTERN
     Route: 065

REACTIONS (5)
  - Psychotic disorder [Recovered/Resolved]
  - Blood testosterone increased [Unknown]
  - Intentional product misuse [Recovering/Resolving]
  - Drug interaction [Recovering/Resolving]
  - Cortisol increased [Unknown]
